FAERS Safety Report 7816414-3 (Version None)
Quarter: 2011Q4

REPORT INFORMATION
  Report Type: 
  Country: None (occurrence: None)
  Receive Date: 20111017
  Receipt Date: 20111005
  Transmission Date: 20120403
  Serious: Yes (Other)
  Sender: FDA-Public Use
  Company Number: US-RB-028569-11

PATIENT
  Age: 28 Year
  Sex: Female

DRUGS (1)
  1. MUCINEX [Suspect]
     Route: 048
     Dates: start: 20111004

REACTIONS (4)
  - DIPLOPIA [None]
  - LOSS OF CONSCIOUSNESS [None]
  - VISION BLURRED [None]
  - WRONG TECHNIQUE IN DRUG USAGE PROCESS [None]
